FAERS Safety Report 10306227 (Version 1)
Quarter: 2014Q3

REPORT INFORMATION
  Report Type: Spontaneous
  Country: US (occurrence: US)
  Receive Date: 20140715
  Receipt Date: 20140715
  Transmission Date: 20150326
  Serious: Yes (Death, Hospitalization)
  Sender: FDA-Public Use
  Company Number: US-B.I. PHARMACEUTICALS,INC./RIDGEFIELD-2014-BI-31540GD

PATIENT
  Age: 84 Year
  Sex: Male

DRUGS (1)
  1. PRADAXA [Suspect]
     Active Substance: DABIGATRAN ETEXILATE MESYLATE
     Indication: ATRIAL FIBRILLATION
     Route: 065

REACTIONS (9)
  - Mesenteric artery thrombosis [Fatal]
  - Bundle branch block left [Unknown]
  - Rebound effect [Fatal]
  - Myocardial infarction [Unknown]
  - Gastrointestinal necrosis [Unknown]
  - Renal impairment [Unknown]
  - Small intestinal obstruction [Unknown]
  - Cardiac ventricular thrombosis [Fatal]
  - Hypercoagulation [Fatal]
